FAERS Safety Report 22977517 (Version 11)
Quarter: 2024Q4

REPORT INFORMATION
  Report Type: Report from Study
  Country: NL (occurrence: NL)
  Receive Date: 20230925
  Receipt Date: 20241216
  Transmission Date: 20250114
  Serious: No
  Sender: TAKEDA
  Company Number: NL-TAKEDA-2022TUS051365

PATIENT
  Age: 53 Year
  Sex: Female

DRUGS (5)
  1. PARATHYROID HORMONE [Suspect]
     Active Substance: PARATHYROID HORMONE
     Indication: Hypoparathyroidism
     Dosage: 100 MICROGRAM
  2. PARATHYROID HORMONE [Suspect]
     Active Substance: PARATHYROID HORMONE
     Dosage: 50 MICROGRAM
  3. PARATHYROID HORMONE [Suspect]
     Active Substance: PARATHYROID HORMONE
     Dosage: 50 MICROGRAM, QD
  4. PARATHYROID HORMONE [Suspect]
     Active Substance: PARATHYROID HORMONE
     Dosage: UNK
  5. PARATHYROID HORMONE [Suspect]
     Active Substance: PARATHYROID HORMONE
     Dosage: UNK

REACTIONS (11)
  - Tremor [Unknown]
  - Product container issue [Unknown]
  - Device physical property issue [Unknown]
  - Product packaging quantity issue [Unknown]
  - Muscle spasms [Unknown]
  - Paraesthesia [Unknown]
  - Product use issue [Unknown]
  - Wrong technique in product usage process [Unknown]
  - Extra dose administered [Unknown]
  - Product dose omission issue [Unknown]
  - Device malfunction [Not Recovered/Not Resolved]

NARRATIVE: CASE EVENT DATE: 20230914
